FAERS Safety Report 26039483 (Version 1)
Quarter: 2025Q4

REPORT INFORMATION
  Report Type: Spontaneous
  Country: US (occurrence: None)
  Receive Date: 20251113
  Receipt Date: 20251113
  Transmission Date: 20260117
  Serious: No
  Sender: CHIESI
  Company Number: US-CHIESI-2025CHF04611

PATIENT
  Sex: Male

DRUGS (3)
  1. BETHKIS [Suspect]
     Active Substance: TOBRAMYCIN
     Indication: Bronchiectasis
     Dosage: 150 MILLIGRAM, BID
     Dates: start: 202504
  2. BETHKIS [Suspect]
     Active Substance: TOBRAMYCIN
     Indication: Pneumonia
  3. BETHKIS [Suspect]
     Active Substance: TOBRAMYCIN
     Indication: Off label use

REACTIONS (3)
  - Off label use [Unknown]
  - Off label use [Unknown]
  - Off label use [Unknown]

NARRATIVE: CASE EVENT DATE: 20250401
